FAERS Safety Report 8410877-0 (Version None)
Quarter: 2012Q2

REPORT INFORMATION
  Report Type: 
  Country: None (occurrence: None)
  Receive Date: 20120605
  Receipt Date: 20120530
  Transmission Date: 20120825
  Serious: Yes (Hospitalization, Other)
  Sender: FDA-Public Use
  Company Number: PHHY2012TW040173

PATIENT
  Sex: Female

DRUGS (2)
  1. ANALGESICS [Concomitant]
     Route: 048
     Dates: start: 20120503, end: 20120506
  2. ZOLEDRONOC ACID [Suspect]
     Indication: OSTEOPOROSIS
     Dosage: 5MG/ 100ML, UNK
     Route: 042
     Dates: start: 20120503

REACTIONS (19)
  - NASAL OEDEMA [None]
  - SWELLING FACE [None]
  - DECREASED IMMUNE RESPONSIVENESS [None]
  - ERYTHEMA [None]
  - EYE SWELLING [None]
  - LIP SWELLING [None]
  - FLUSHING [None]
  - SUBCUTANEOUS ABSCESS [None]
  - ORAL MUCOSA EROSION [None]
  - DYSPHAGIA [None]
  - HEADACHE [None]
  - RASH [None]
  - HERPES VIRUS INFECTION [None]
  - ORAL PAIN [None]
  - MOUTH ULCERATION [None]
  - DIZZINESS [None]
  - OCULAR HYPERAEMIA [None]
  - CELLULITIS [None]
  - INFLUENZA LIKE ILLNESS [None]
